FAERS Safety Report 8612542-3 (Version None)
Quarter: 2012Q3

REPORT INFORMATION
  Report Type: 
  Country: None (occurrence: None)
  Receive Date: 20120822
  Receipt Date: 20111006
  Transmission Date: 20120928
  Serious: No
  Sender: FDA-Public Use
  Company Number: US-ASTRAZENECA-2011SE60242

PATIENT
  Age: 71 Year
  Sex: Female
  Weight: 49.9 kg

DRUGS (1)
  1. SYMBICORT [Suspect]
     Dosage: TOTAL DAILY DOSE 160/4.5 BID TWO PUFFS AM AND PM
     Route: 055

REACTIONS (1)
  - HEART RATE INCREASED [None]
